FAERS Safety Report 16752797 (Version 1)
Quarter: 2019Q3

REPORT INFORMATION
  Report Type: Report from Study
  Country: None (occurrence: BR)
  Receive Date: 20190829
  Receipt Date: 20190829
  Transmission Date: 20191005
  Serious: Yes (Hospitalization, Other)
  Sender: FDA-Public Use
  Company Number: BR-ABBVIE-19K-020-2719124-00

PATIENT
  Sex: Male

DRUGS (6)
  1. HUMIRA [Suspect]
     Active Substance: ADALIMUMAB
     Route: 058
     Dates: start: 2019, end: 201908
  2. NPH INSULIN [Concomitant]
     Active Substance: INSULIN BEEF
     Indication: DIABETES MELLITUS
     Dosage: 30 UNITS IN THE MORNING; 30 UNITS AT LUNCH; 30 UNITS AT DINNER
     Route: 058
  3. HUMIRA [Suspect]
     Active Substance: ADALIMUMAB
     Indication: ANKYLOSING SPONDYLITIS
     Route: 058
     Dates: start: 20140118, end: 201902
  4. VALSARTAN. [Concomitant]
     Active Substance: VALSARTAN
     Indication: HYPERTENSION
  5. REGULAR INSULIN [Concomitant]
     Active Substance: INSULIN NOS
     Indication: DIABETES MELLITUS
     Dosage: 10 UNITS AT LUNCH
     Route: 058
  6. FORXIGA [Concomitant]
     Active Substance: DAPAGLIFLOZIN
     Indication: DIABETES MELLITUS
     Route: 048

REACTIONS (12)
  - Localised infection [Not Recovered/Not Resolved]
  - Skin ulcer [Unknown]
  - Osteomyelitis [Unknown]
  - Gangrene [Unknown]
  - Blood glucose abnormal [Unknown]
  - Wound [Unknown]
  - Erysipelas [Unknown]
  - Toe amputation [Not Recovered/Not Resolved]
  - Immunodeficiency [Unknown]
  - Thrombosis [Unknown]
  - Angiopathy [Unknown]
  - Erythema [Unknown]

NARRATIVE: CASE EVENT DATE: 201902
